FAERS Safety Report 8763763 (Version 1)
Quarter: 2012Q4

REPORT INFORMATION
  Report Type: 
  Country: FR (occurrence: FR)
  Receive Date: 20120831
  Receipt Date: 20120831
  Transmission Date: 20130627
  Serious: Yes (Other)
  Sender: FDA-Public Use
  Company Number: PHHY2012FR074895

PATIENT
  Sex: Male

DRUGS (6)
  1. TEGRETOL [Suspect]
     Dosage: 1 DF Daily
     Route: 048
  2. PREVISCAN [Interacting]
     Dosage: 20 mg, Daily
     Dates: start: 201207
  3. PREVISCAN [Interacting]
     Dosage: 30 mg, Daily
     Route: 048
     Dates: start: 20120720
  4. PREVISCAN [Interacting]
     Dosage: 40 mg, daily
     Route: 048
  5. ARIXTRA [Concomitant]
     Indication: THROMBOSIS
     Dosage: 1 DF, Daily
     Dates: start: 20120612, end: 201207
  6. LYRICA [Concomitant]

REACTIONS (5)
  - Deep vein thrombosis [Unknown]
  - Ligament rupture [Unknown]
  - Coagulation time shortened [Unknown]
  - Drug interaction [Unknown]
  - Drug ineffective [Recovered/Resolved]
